FAERS Safety Report 23270056 (Version 1)
Quarter: 2023Q4

REPORT INFORMATION
  Report Type: Spontaneous
  Country: US (occurrence: US)
  Receive Date: 20231207
  Receipt Date: 20231207
  Transmission Date: 20240110
  Serious: No
  Sender: FDA-Public Use
  Company Number: US-drreddys-SPO/USA/23/0187606

PATIENT
  Age: 19 Year

DRUGS (1)
  1. ACCUTANE [Suspect]
     Active Substance: ISOTRETINOIN
     Indication: Product used for unknown indication
     Dosage: 30 MG ,BOX OF 30( 3 PACKS OF 10 CAPSULES)
     Dates: start: 20230727, end: 20231118

REACTIONS (3)
  - Treatment noncompliance [Unknown]
  - Brain fog [Recovering/Resolving]
  - Anxiety [Unknown]

NARRATIVE: CASE EVENT DATE: 20231118
